FAERS Safety Report 12377014 (Version 1)
Quarter: 2016Q2

REPORT INFORMATION
  Report Type: Report from Study
  Country: US (occurrence: US)
  Receive Date: 20160517
  Receipt Date: 20160517
  Transmission Date: 20160815
  Serious: No
  Sender: FDA-Public Use
  Company Number: US-MALLINCKRODT-T201504232

PATIENT
  Age: 42 Year
  Sex: Female

DRUGS (1)
  1. REPOSITORY CORTICOTROPIN INJECTION [Suspect]
     Active Substance: CORTICOTROPIN
     Indication: RHEUMATOID ARTHRITIS
     Dosage: 80 U/1ML; 2X/WEEK
     Route: 058
     Dates: start: 20150820

REACTIONS (3)
  - Drug dose omission [Unknown]
  - Injection site pain [Not Recovered/Not Resolved]
  - Fluid retention [Not Recovered/Not Resolved]

NARRATIVE: CASE EVENT DATE: 20150820
